FAERS Safety Report 14531109 (Version 1)
Quarter: 2018Q1

REPORT INFORMATION
  Report Type: Spontaneous
  Country: US (occurrence: US)
  Receive Date: 20180214
  Receipt Date: 20180214
  Transmission Date: 20180509
  Serious: No
  Sender: FDA-Public Use
  Company Number: US-ARBOR PHARMACEUTICALS, LLC-US-2017ARB000417

PATIENT

DRUGS (1)
  1. EDARBYCLOR [Suspect]
     Active Substance: AZILSARTAN KAMEDOXOMIL\CHLORTHALIDONE
     Indication: HYPERTENSION
     Dosage: UNK UNK, QD
     Route: 048
     Dates: start: 201702, end: 201703

REACTIONS (10)
  - Nasopharyngitis [Unknown]
  - Cough [Unknown]
  - Dizziness postural [Unknown]
  - Muscle spasms [Unknown]
  - Headache [Unknown]
  - Ill-defined disorder [Unknown]
  - Drug ineffective [Unknown]
  - Emotional distress [Unknown]
  - Drug intolerance [Unknown]
  - Dizziness [Unknown]

NARRATIVE: CASE EVENT DATE: 2017
